FAERS Safety Report 12089271 (Version 1)
Quarter: 2016Q1

REPORT INFORMATION
  Report Type: Spontaneous
  Country: US (occurrence: None)
  Receive Date: 20160217
  Receipt Date: 20160217
  Transmission Date: 20160526
  Serious: Yes (Other)
  Sender: FDA-Public Use
  Company Number: None

PATIENT
  Age: 52 Year
  Sex: Male

DRUGS (1)
  1. BUSPIRONE [Suspect]
     Active Substance: BUSPIRONE HYDROCHLORIDE
     Dosage: 1 TABLET
     Route: 048

REACTIONS (4)
  - Emotional disorder [None]
  - Product substitution issue [None]
  - Mental impairment [None]
  - Agitation [None]

NARRATIVE: CASE EVENT DATE: 20160101
